FAERS Safety Report 8135776-3 (Version None)
Quarter: 2012Q1

REPORT INFORMATION
  Report Type: 
  Country: None (occurrence: None)
  Receive Date: 20120210
  Receipt Date: 20120201
  Transmission Date: 20120608
  Serious: Yes (Other)
  Sender: FDA-Public Use
  Company Number: 2012AP000207

PATIENT
  Age: 52 Year
  Sex: Female

DRUGS (2)
  1. AZITHROMYCIN [Suspect]
     Indication: PHARYNGITIS
     Dosage: PO
     Route: 048
     Dates: start: 20111229, end: 20111230
  2. AZITHROMYCIN [Concomitant]

REACTIONS (6)
  - LIP SWELLING [None]
  - EAR PAIN [None]
  - PHARYNGEAL OEDEMA [None]
  - COUGH [None]
  - HYPERSENSITIVITY [None]
  - ODYNOPHAGIA [None]
